FAERS Safety Report 4376144-X (Version None)
Quarter: 2004Q2

REPORT INFORMATION
  Report Type: 
  Country: None (occurrence: None)
  Receive Date: 20040611
  Receipt Date: 20040610
  Transmission Date: 20050107
  Serious: Yes (Life-Threatening, Hospitalization)
  Sender: FDA-Public Use
  Company Number: DE-BRISTOL-MYERS SQUIBB COMPANY-12611133

PATIENT
  Age: 71 Year
  Sex: Male

DRUGS (9)
  1. CARBOPLATIN [Suspect]
     Indication: PLEURAL MESOTHELIOMA
     Dosage: 4 MG/ML/MIN (AUC 4)
     Dates: start: 20040415, end: 20040415
  2. PEMETREXED DISODIUM [Suspect]
     Indication: PLEURAL MESOTHELIOMA
     Route: 042
     Dates: start: 20040415, end: 20040415
  3. CAPTOHEXAL [Concomitant]
     Indication: HYPERTENSION
  4. TOREMIFENE [Concomitant]
     Indication: HYPERTENSION
  5. GLUCOPHAGE [Concomitant]
     Indication: DIABETES MELLITUS
  6. NOVAMINSULFON [Concomitant]
     Indication: PAIN
  7. FOLIC ACID [Concomitant]
     Indication: PROPHYLAXIS
  8. VITAMIN B-12 [Concomitant]
     Indication: PROPHYLAXIS
  9. DEXAMETHASONE [Concomitant]

REACTIONS (7)
  - ANAEMIA [None]
  - DERMATITIS BULLOUS [None]
  - LEUKOPENIA [None]
  - MUCOSAL INFLAMMATION [None]
  - NEUTROPENIA [None]
  - STOMATITIS [None]
  - THROMBOCYTOPENIA [None]
